FAERS Safety Report 25224173 (Version 1)
Quarter: 2025Q2

REPORT INFORMATION
  Report Type: Other
  Country: ES (occurrence: ES)
  Receive Date: 20250422
  Receipt Date: 20250422
  Transmission Date: 20250717
  Serious: Yes (Hospitalization)
  Sender: ZYDUS PHARM
  Company Number: None

PATIENT

DRUGS (6)
  1. ATORVASTATIN [Suspect]
     Active Substance: ATORVASTATIN
     Indication: Hypercholesterolaemia
     Route: 048
     Dates: start: 20241213, end: 20250129
  2. BEMPEDOIC ACID\EZETIMIBE [Suspect]
     Active Substance: BEMPEDOIC ACID\EZETIMIBE
     Indication: Hypercholesterolaemia
     Route: 048
     Dates: start: 20241213, end: 20250129
  3. DELAFLOXACIN MEGLUMINE [Suspect]
     Active Substance: DELAFLOXACIN MEGLUMINE
     Indication: Device related infection
     Route: 048
     Dates: start: 20241106, end: 20250129
  4. DALBAVANCIN HYDROCHLORIDE [Concomitant]
     Active Substance: DALBAVANCIN HYDROCHLORIDE
     Indication: Device related infection
     Route: 042
     Dates: start: 20221223, end: 20241106
  5. DALBAVANCIN HYDROCHLORIDE [Concomitant]
     Active Substance: DALBAVANCIN HYDROCHLORIDE
     Route: 042
     Dates: start: 20250129, end: 20250129
  6. CIPROFLOXACIN [Concomitant]
     Active Substance: CIPROFLOXACIN
     Indication: Device related infection
     Route: 048
     Dates: start: 20221223, end: 20241106

REACTIONS (7)
  - Autonomic nervous system imbalance [Recovered/Resolved]
  - Decreased appetite [Recovered/Resolved]
  - Hypertension [Recovered/Resolved]
  - Pallor [Recovered/Resolved]
  - Presyncope [Recovered/Resolved]
  - Tremor [Recovered/Resolved]
  - Malaise [Recovered/Resolved]

NARRATIVE: CASE EVENT DATE: 20241229
